FAERS Safety Report 26177284 (Version 1)
Quarter: 2025Q4

REPORT INFORMATION
  Report Type: Spontaneous
  Country: CA (occurrence: CA)
  Receive Date: 20251219
  Receipt Date: 20251219
  Transmission Date: 20260118
  Serious: Yes (Life-Threatening, Other)
  Sender: CELLTRION
  Company Number: CA-CELLTRION INC.-2025CA045164

PATIENT

DRUGS (7)
  1. HERZUMA [Suspect]
     Active Substance: TRASTUZUMAB-PKRB
     Indication: Invasive ductal breast carcinoma
     Dosage: 640.0 MILLIGRAM
     Route: 042
  2. FENBENDAZOLE [Concomitant]
     Active Substance: FENBENDAZOLE
  3. HERCEPTIN [Concomitant]
     Active Substance: TRASTUZUMAB
     Route: 065
  4. IVERMECTIN [Concomitant]
     Active Substance: IVERMECTIN
  5. METHYLENE BLUE [Concomitant]
     Active Substance: METHYLENE BLUE
  6. PACLITAXEL [Concomitant]
     Active Substance: PACLITAXEL
  7. PERJETA [Concomitant]
     Active Substance: PERTUZUMAB

REACTIONS (1)
  - Anaphylactic reaction [Recovered/Resolved]
